FAERS Safety Report 26112282 (Version 1)
Quarter: 2025Q4

REPORT INFORMATION
  Report Type: Report from Study
  Country: GB (occurrence: GB)
  Receive Date: 20251202
  Receipt Date: 20251202
  Transmission Date: 20260118
  Serious: Yes (Hospitalization)
  Sender: EMD SERONO INC
  Company Number: GB-Merck Healthcare KGaA-2025060976

PATIENT
  Sex: Female

DRUGS (2)
  1. MAVENCLAD [Suspect]
     Active Substance: CLADRIBINE
     Indication: Multiple sclerosis
     Dosage: YEAR ONE WEEK FIVE THERAPY
  2. MAVENCLAD [Suspect]
     Active Substance: CLADRIBINE
     Dosage: YEAR ONE WEEK ONE THERAPY TWO TABLET ON DAY 1 TO 4 AND ONE TABLET ON DAY 5.
     Dates: start: 20240930

REACTIONS (3)
  - Bacterial infection [Not Recovered/Not Resolved]
  - Sepsis [Not Recovered/Not Resolved]
  - Influenza [Not Recovered/Not Resolved]
